FAERS Safety Report 4392581-1 (Version None)
Quarter: 2004Q3

REPORT INFORMATION
  Report Type: 
  Country: None (occurrence: None)
  Receive Date: 20040702
  Receipt Date: 20040301
  Transmission Date: 20050211
  Serious: Yes (Other)
  Sender: FDA-Public Use
  Company Number: 2004UW03720

PATIENT
  Age: 58 Year
  Sex: Male
  Weight: 149.687 kg

DRUGS (5)
  1. CRESTOR [Suspect]
     Indication: BLOOD CHOLESTEROL INCREASED
     Dosage: 10 MG PO
     Route: 048
     Dates: start: 20040226
  2. PRANDIN [Concomitant]
  3. ACTOS [Concomitant]
  4. GLUCOPHAGE [Concomitant]
  5. ZESTRIL [Concomitant]

REACTIONS (2)
  - DIPLOPIA [None]
  - VISION BLURRED [None]
